FAERS Safety Report 14470441 (Version 2)
Quarter: 2018Q2

REPORT INFORMATION
  Report Type: Spontaneous
  Country: IT (occurrence: IT)
  Receive Date: 20180131
  Receipt Date: 20180412
  Transmission Date: 20180711
  Serious: Yes (Life-Threatening, Hospitalization, Other)
  Sender: FDA-Public Use
  Company Number: GB-SA-2018SA022001

PATIENT
  Sex: Male

DRUGS (2)
  1. MENOTROPHIN [Suspect]
     Active Substance: MENOTROPINS
     Indication: CONTROLLED OVARIAN STIMULATION
     Dosage: FOR THREE CYCLES
     Route: 065
  2. CLOMIFENE CITRATE [Suspect]
     Active Substance: CLOMIPHENE
     Indication: CONTROLLED OVARIAN STIMULATION
     Dosage: FOR THREE CYCLES
     Route: 065

REACTIONS (2)
  - Neonatal respiratory distress syndrome [Recovering/Resolving]
  - Maternal exposure before pregnancy [Unknown]
